FAERS Safety Report 7964893-3 (Version None)
Quarter: 2011Q4

REPORT INFORMATION
  Report Type: 
  Country: None (occurrence: None)
  Receive Date: 20111208
  Receipt Date: 20111122
  Transmission Date: 20120403
  Serious: Yes (Hospitalization)
  Sender: FDA-Public Use
  Company Number: GB-ROCHE-1014805

PATIENT
  Age: 55 Year
  Sex: Female
  Weight: 54.6 kg

DRUGS (1)
  1. VEMURAFENIB [Suspect]
     Indication: METASTATIC MALIGNANT MELANOMA
     Dosage: DATE OF LAST DOSE PRIOR TO SAE:21/OCT/2011
     Route: 048

REACTIONS (1)
  - LEFT VENTRICULAR DYSFUNCTION [None]
